FAERS Safety Report 19601011 (Version 6)
Quarter: 2021Q4

REPORT INFORMATION
  Report Type: Report from Study
  Country: US (occurrence: US)
  Receive Date: 20210722
  Receipt Date: 20211126
  Transmission Date: 20220303
  Serious: Yes (Hospitalization, Other)
  Sender: FDA-Public Use
  Company Number: US-NOVARTISPH-NVSC2021US159942

PATIENT
  Sex: Male

DRUGS (2)
  1. PROMACTA [Suspect]
     Active Substance: ELTROMBOPAG OLAMINE
     Indication: Product used for unknown indication
     Dosage: UNK
     Route: 048
  2. LIPITOR [Concomitant]
     Active Substance: ATORVASTATIN CALCIUM
     Indication: Product used for unknown indication
     Dosage: UNK
     Route: 065

REACTIONS (14)
  - Lyme disease [Unknown]
  - Fall [Unknown]
  - Neuralgia [Unknown]
  - Facial paralysis [Unknown]
  - Hemiplegia [Unknown]
  - Pain [Unknown]
  - Blood cholesterol increased [Unknown]
  - Platelet count decreased [Unknown]
  - Neck pain [Unknown]
  - Headache [Unknown]
  - Ear pain [Unknown]
  - Pain in jaw [Unknown]
  - Morning sickness [Unknown]
  - Memory impairment [Unknown]
